FAERS Safety Report 20558025 (Version 1)
Quarter: 2022Q1

REPORT INFORMATION
  Report Type: Spontaneous
  Country: US (occurrence: US)
  Receive Date: 20220307
  Receipt Date: 20220307
  Transmission Date: 20220424
  Serious: Yes (Other)
  Sender: FDA-Public Use
  Company Number: US-CELLTRION INC.-2022US002438

PATIENT

DRUGS (1)
  1. TRUXIMA [Suspect]
     Active Substance: RITUXIMAB-ABBS
     Indication: Haemolytic anaemia
     Dosage: 700 MG Q 5 DAYS
     Dates: start: 20220106

REACTIONS (2)
  - Haemolytic anaemia [Unknown]
  - Off label use [Unknown]
